FAERS Safety Report 17069605 (Version 1)
Quarter: 2019Q4

REPORT INFORMATION
  Report Type: Other
  Country: GB (occurrence: GB)
  Receive Date: 20191125
  Receipt Date: 20191125
  Transmission Date: 20200122
  Serious: Yes (Disabling)
  Sender: FDA-Public Use
  Company Number: GB-EMCURE PHARMACEUTICALS LTD-2019-EPL-1089

PATIENT
  Age: 32 Year
  Sex: Female
  Weight: 44 kg

DRUGS (6)
  1. NORETHISTERONE [Concomitant]
     Active Substance: NORETHINDRONE
     Dosage: 1 DOSAGE FORM, EVERY 8 HOURS, FOR 10 DAYS
     Route: 065
     Dates: start: 20191028
  2. PROCHLORPERAZINE. [Concomitant]
     Active Substance: PROCHLORPERAZINE
     Dosage: 1 DOSAGE FORM, PRN, THREE TIMES DAILY
     Route: 065
     Dates: start: 20191018
  3. ALGINIC ACID [Concomitant]
     Active Substance: ALGINIC ACID
     Dosage: 10ML-20ML 4 TIMES DAILY
     Route: 065
     Dates: start: 20190626
  4. FERROUS SULFATE. [Concomitant]
     Active Substance: FERROUS SULFATE
     Dosage: 3 DOSAGE FORM, DAILY
     Route: 065
     Dates: start: 20190827, end: 20190924
  5. TRANEXAMIC ACID. [Suspect]
     Active Substance: TRANEXAMIC ACID
     Indication: MENORRHAGIA
     Dosage: 3000 MILLIGRAM, DAILY, FOR UP TO 4 DAYS
     Route: 065
     Dates: start: 20191001
  6. METFORMIN [Concomitant]
     Active Substance: METFORMIN HYDROCHLORIDE
     Dosage: 1 DOSAGE FORM, 1 DAILY FOR 7 DAYS AND THEN 1 TWICE DAILY
     Route: 065
     Dates: start: 20190711

REACTIONS (6)
  - Malaise [Recovered/Resolved]
  - Chest pain [Unknown]
  - Dizziness [Recovered/Resolved]
  - Tremor [Recovered/Resolved]
  - Confusional state [Unknown]
  - Chest pain [Recovering/Resolving]

NARRATIVE: CASE EVENT DATE: 20191028
